FAERS Safety Report 23922234 (Version 1)
Quarter: 2024Q2

REPORT INFORMATION
  Report Type: Spontaneous
  Country: US (occurrence: US)
  Receive Date: 20240531
  Receipt Date: 20240531
  Transmission Date: 20240716
  Serious: No
  Sender: FDA-Public Use
  Company Number: US-LUPIN PHARMACEUTICALS INC.-2024-04385

PATIENT

DRUGS (1)
  1. CEFDINIR [Suspect]
     Active Substance: CEFDINIR
     Indication: Infection
     Dosage: UNK, BID
     Route: 048
     Dates: start: 20240516, end: 20240520

REACTIONS (2)
  - Product storage error [Unknown]
  - No adverse event [Unknown]
